FAERS Safety Report 9860588 (Version 2)
Quarter: 2014Q1

REPORT INFORMATION
  Report Type: Spontaneous
  Country: TH (occurrence: TH)
  Receive Date: 20140202
  Receipt Date: 20140202
  Transmission Date: 20141002
  Serious: No
  Sender: FDA-Public Use
  Company Number: TH-ALLERGAN-1218243US

PATIENT
  Age: 27 Year
  Sex: Female

DRUGS (1)
  1. BOTOX [Suspect]
     Indication: SKIN WRINKLING
     Dosage: 100 UNITS, SINGLE
     Route: 030
     Dates: start: 20080901, end: 20080901

REACTIONS (1)
  - Musculoskeletal deformity [Unknown]
